FAERS Safety Report 10017996 (Version 1)
Quarter: 2014Q1

REPORT INFORMATION
  Report Type: Spontaneous
  Country: US (occurrence: None)
  Receive Date: 20140312
  Receipt Date: 20140312
  Transmission Date: 20141002
  Serious: Yes (Other)
  Sender: FDA-Public Use
  Company Number: 2014P1001822

PATIENT
  Age: 6 Year
  Sex: Male

DRUGS (1)
  1. ACTIMMUNE [Suspect]
     Indication: NEUTROPHIL COUNT ABNORMAL
     Route: 058
     Dates: start: 20110509, end: 20140225

REACTIONS (1)
  - Pneumonia [None]
